FAERS Safety Report 16495048 (Version 1)
Quarter: 2019Q2

REPORT INFORMATION
  Report Type: Spontaneous
  Country: ES (occurrence: ES)
  Receive Date: 20190628
  Receipt Date: 20190628
  Transmission Date: 20190711
  Serious: Yes (Hospitalization)
  Sender: FDA-Public Use
  Company Number: ES-TEVA-2019-ES-1070838

PATIENT
  Age: 82 Year
  Sex: Female
  Weight: 85 kg

DRUGS (5)
  1. LANSOPRAZOL MYLAN PHARMACEUTICALS 30 MG CAPSULAS GASTRORRESISTENTES EF [Concomitant]
     Dosage: 30MG PER 24HRS
     Route: 048
     Dates: start: 20060101
  2. PREDNISONA CINFA 10 MG COMPRIMIDOS, 30 COMPRIMIDOS [Concomitant]
     Indication: RHEUMATOID ARTHRITIS
     Dosage: 2.5MG PER 24HRS
     Route: 048
     Dates: start: 20190125, end: 20190309
  3. RATIOGRASTIM 48 MU/0,8 ML SOLUCION PARA INYECCION O PERFUSION, 5 JERIN [Suspect]
     Active Substance: FILGRASTIM
     Dosage: 75 MG PER TOTAL
     Route: 048
     Dates: start: 20190303, end: 20190303
  4. CLOPIDOGREL MYLAN 75 MG COMPRIMIDOS RECUBIERTOS CON PELICULA EFG, 50 C [Concomitant]
     Indication: CEREBROVASCULAR ACCIDENT
     Dosage: 75MG PER 24HRS
     Route: 048
     Dates: start: 20060101
  5. LISINOPRIL/HIDROCLOROTIAZIDA MYLAN 20/12,5 MG COMPRIMIDOS EFG , 28 COM [Concomitant]
     Indication: HYPERTENSION
     Dosage: 1DOSAGE FORM PER DAY
     Route: 048
     Dates: start: 20060101

REACTIONS (3)
  - Intestinal obstruction [Recovered/Resolved]
  - Vomiting [Recovered/Resolved]
  - Abdominal pain [Recovered/Resolved]

NARRATIVE: CASE EVENT DATE: 20190303
